FAERS Safety Report 5510767-7 (Version None)
Quarter: 2007Q4

REPORT INFORMATION
  Report Type: 
  Country: None (occurrence: None)
  Receive Date: 20071108
  Receipt Date: 20071102
  Transmission Date: 20080405
  Serious: Yes (Hospitalization)
  Sender: FDA-Public Use
  Company Number: B0493720A

PATIENT
  Age: 90 Year
  Sex: Male
  Weight: 50 kg

DRUGS (1)
  1. ARIXTRA [Suspect]
     Indication: THROMBOSIS PROPHYLAXIS
     Dosage: 2.5MG PER DAY
     Route: 058
     Dates: start: 20071025, end: 20071026

REACTIONS (1)
  - LOWER GASTROINTESTINAL HAEMORRHAGE [None]
